FAERS Safety Report 7313787-5 (Version None)
Quarter: 2011Q1

REPORT INFORMATION
  Report Type: 
  Country: None (occurrence: None)
  Receive Date: 20110225
  Receipt Date: 20110223
  Transmission Date: 20110831
  Serious: Yes (Other)
  Sender: FDA-Public Use
  Company Number: US-PFIZER INC-2011031401

PATIENT
  Sex: Male
  Weight: 71.202 kg

DRUGS (9)
  1. VIAGRA [Suspect]
     Dosage: 100 MG, UNK
     Dates: start: 20110208
  2. NAPROXEN [Concomitant]
     Indication: OSTEOARTHRITIS
  3. VITAMIN B [Concomitant]
  4. ACETAMINOPHEN [Concomitant]
     Route: 048
  5. ZYPREXA [Concomitant]
     Indication: SLEEP DISORDER
     Dosage: 5 MG, 1X/DAY
     Route: 048
  6. IBUPROFEN [Concomitant]
     Indication: OSTEOARTHRITIS
     Dosage: 200 MG, 2X/DAY
  7. EFFEXOR XR [Concomitant]
     Dosage: 5 MG, 1X/DAY
  8. VIAGRA [Suspect]
     Indication: ERECTILE DYSFUNCTION
     Dosage: 700 MG, UNK
     Route: 048
  9. NAPROXEN [Concomitant]
     Indication: ARTHRITIS
     Dosage: 375 MG, AS NEEDED

REACTIONS (11)
  - PENIS DISORDER [None]
  - DRUG INEFFECTIVE [None]
  - PENILE SWELLING [None]
  - FLUSHING [None]
  - ERECTION INCREASED [None]
  - ABDOMINAL DISCOMFORT [None]
  - PAIN [None]
  - INCORRECT DOSE ADMINISTERED [None]
  - PENILE DISCHARGE [None]
  - EJACULATION DISORDER [None]
  - DYSURIA [None]
